FAERS Safety Report 9731949 (Version 1)
Quarter: 2013Q4

REPORT INFORMATION
  Report Type: Spontaneous
  Country: US (occurrence: US)
  Receive Date: 20131204
  Receipt Date: 20131204
  Transmission Date: 20140711
  Serious: Yes (Hospitalization)
  Sender: FDA-Public Use
  Company Number: US-ASTELLAS-2013US012510

PATIENT
  Age: 68 Year
  Sex: Male
  Weight: 102 kg

DRUGS (1)
  1. PROGRAF [Suspect]
     Indication: LUNG TRANSPLANT
     Dosage: 4.5 MG, UID/QD
     Route: 048
     Dates: start: 20130117

REACTIONS (4)
  - Off label use [Unknown]
  - Muscle atrophy [Unknown]
  - Incontinence [Unknown]
  - Fall [Unknown]
